FAERS Safety Report 13419743 (Version 1)
Quarter: 2017Q2

REPORT INFORMATION
  Report Type: Spontaneous
  Country: US (occurrence: US)
  Receive Date: 20170407
  Receipt Date: 20170407
  Transmission Date: 20170830
  Serious: No
  Sender: FDA-Public Use
  Company Number: US-ELI_LILLY_AND_COMPANY-US201703009560

PATIENT
  Sex: Female

DRUGS (17)
  1. BENAZEPRIL [Concomitant]
     Active Substance: BENAZEPRIL HYDROCHLORIDE
     Indication: BLOOD PRESSURE MEASUREMENT
  2. HUMULIN R [Suspect]
     Active Substance: INSULIN HUMAN
     Dosage: 40 U, QD
     Route: 058
  3. PRIMIDONE. [Concomitant]
     Active Substance: PRIMIDONE
     Indication: TREMOR
  4. ATORVASTATIN [Concomitant]
     Active Substance: ATORVASTATIN
     Indication: BLOOD CHOLESTEROL
  5. OMEGA 3 FISH OILS [Concomitant]
     Active Substance: OMEGA-3 FATTY ACIDS
     Indication: CARDIAC DISORDER
  6. HUMULIN R [Suspect]
     Active Substance: INSULIN HUMAN
     Dosage: 110 U, QD
     Route: 058
  7. COREG [Concomitant]
     Active Substance: CARVEDILOL
     Indication: BLOOD PRESSURE MEASUREMENT
  8. LANSOPRAZOLE. [Concomitant]
     Active Substance: LANSOPRAZOLE
     Indication: DYSPEPSIA
  9. HUMULIN R [Suspect]
     Active Substance: INSULIN HUMAN
     Dosage: 60 U, QD
     Route: 058
  10. CORLANOR [Concomitant]
     Active Substance: IVABRADINE HYDROCHLORIDE
     Indication: CARDIAC DISORDER
  11. HUMULIN R [Suspect]
     Active Substance: INSULIN HUMAN
     Indication: TYPE 2 DIABETES MELLITUS
     Dosage: 60 U, QD
     Route: 058
  12. HUMULIN R [Suspect]
     Active Substance: INSULIN HUMAN
     Dosage: 80 U, QD
     Route: 058
  13. HUMULIN R [Suspect]
     Active Substance: INSULIN HUMAN
     Dosage: 80 U, QD
     Route: 058
  14. METFORMIN [Concomitant]
     Active Substance: METFORMIN HYDROCHLORIDE
     Indication: DIABETES MELLITUS
  15. FUROSEMIDE. [Concomitant]
     Active Substance: FUROSEMIDE
     Indication: BLOOD PRESSURE MEASUREMENT
  16. DIGOXIN. [Concomitant]
     Active Substance: DIGOXIN
     Indication: CARDIAC DISORDER
  17. DILTIAZEM. [Concomitant]
     Active Substance: DILTIAZEM
     Indication: CARDIAC DISORDER

REACTIONS (6)
  - Hair texture abnormal [Unknown]
  - Trichorrhexis [Unknown]
  - Miliaria [Recovering/Resolving]
  - Nail discolouration [Unknown]
  - Wrong technique in product usage process [Unknown]
  - Blood glucose increased [Unknown]
